FAERS Safety Report 17996259 (Version 2)
Quarter: 2020Q3

REPORT INFORMATION
  Report Type: Spontaneous
  Country: FR (occurrence: FR)
  Receive Date: 20200708
  Receipt Date: 20200818
  Transmission Date: 20201103
  Serious: Yes (Hospitalization)
  Sender: FDA-Public Use
  Company Number: FR-ALLERGAN-2025605US

PATIENT
  Sex: Male

DRUGS (3)
  1. PYLERA [Suspect]
     Active Substance: BISMUTH SUBCITRATE POTASSIUM\METRONIDAZOLE\TETRACYCLINE HYDROCHLORIDE
     Indication: GASTRITIS
     Dosage: 1 DF
     Route: 065
     Dates: start: 20200620, end: 20200622
  2. ATORVASTATINE [Suspect]
     Active Substance: ATORVASTATIN
     Indication: DYSLIPIDAEMIA
     Dosage: 80 MG
     Route: 048
     Dates: end: 20200623
  3. TRIFLUCAN [Suspect]
     Active Substance: FLUCONAZOLE
     Indication: GASTRITIS
     Dosage: 200 MG
     Route: 048
     Dates: start: 20200620, end: 20200622

REACTIONS (4)
  - Hepatitis [Recovering/Resolving]
  - Blood creatine phosphokinase increased [Recovering/Resolving]
  - Muscular weakness [Recovering/Resolving]
  - Renal failure [Recovering/Resolving]

NARRATIVE: CASE EVENT DATE: 20200620
